FAERS Safety Report 5647216-4 (Version None)
Quarter: 2008Q1

REPORT INFORMATION
  Report Type: 
  Country: None (occurrence: None)
  Receive Date: 20080303
  Receipt Date: 20080222
  Transmission Date: 20080703
  Serious: Yes (Hospitalization)
  Sender: FDA-Public Use
  Company Number: CH-ROCHE-549744

PATIENT
  Age: 56 Year

DRUGS (2)
  1. PEG-INTERFERON ALFA NOS [Suspect]
     Route: 058
  2. RIBAVIRIN [Suspect]
     Route: 065

REACTIONS (2)
  - CRYOGLOBULINAEMIA [None]
  - NEUROPATHY PERIPHERAL [None]
